FAERS Safety Report 6703445-X (Version None)
Quarter: 2010Q2

REPORT INFORMATION
  Report Type: 
  Country: None (occurrence: None)
  Receive Date: 20100428
  Receipt Date: 20100414
  Transmission Date: 20101027
  Serious: Yes (Hospitalization)
  Sender: FDA-Public Use
  Company Number: 008416

PATIENT
  Sex: Female
  Weight: 80 kg

DRUGS (7)
  1. NEUPRO [Suspect]
     Dosage: (4 MG)
     Dates: start: 20080101
  2. LEVODOPA [Concomitant]
  3. BISOPROLOL FUMARATE [Concomitant]
  4. PANTOPRAZOLE [Concomitant]
  5. ALLOBETA /00003301/ [Concomitant]
  6. LYRICA [Concomitant]
  7. TRAMADOL HCL [Concomitant]

REACTIONS (8)
  - BILE DUCT STONE [None]
  - CONFUSIONAL STATE [None]
  - HELICOBACTER GASTRITIS [None]
  - HYPERHIDROSIS [None]
  - HYPOPHAGIA [None]
  - NIGHTMARE [None]
  - RESTLESSNESS [None]
  - SLEEP TALKING [None]
